FAERS Safety Report 6069012-9 (Version None)
Quarter: 2009Q1

REPORT INFORMATION
  Report Type: 
  Country: None (occurrence: None)
  Receive Date: 20090203
  Receipt Date: 20090119
  Transmission Date: 20090719
  Serious: Yes (Hospitalization)
  Sender: FDA-Public Use
  Company Number: 6046271

PATIENT
  Age: 40 Year
  Sex: Female

DRUGS (3)
  1. LEVOTHYROXINE SODIUM [Suspect]
     Indication: SUICIDE ATTEMPT
     Dosage: 3 X 28 TABLETS ORAL
     Route: 048
     Dates: start: 20080927, end: 20080927
  2. LEXOMIL(TABLET) (BROMAZEPAM) [Suspect]
     Indication: SUICIDE ATTEMPT
     Dosage: ORAL
     Route: 048
     Dates: start: 20080927, end: 20080927
  3. PYOSTACINE (PRISTINAMYCIN) [Suspect]
     Indication: SUICIDE ATTEMPT
     Dosage: 8 DOSAGE FORMS
     Dates: start: 20080927, end: 20080927

REACTIONS (4)
  - ALCOHOL USE [None]
  - LOSS OF CONSCIOUSNESS [None]
  - OVERDOSE [None]
  - SUICIDE ATTEMPT [None]
